FAERS Safety Report 20883453 (Version 5)
Quarter: 2022Q3

REPORT INFORMATION
  Report Type: Spontaneous
  Country: US (occurrence: US)
  Receive Date: 20220527
  Receipt Date: 20220715
  Transmission Date: 20221027
  Serious: Yes (Hospitalization, Other)
  Sender: FDA-Public Use
  Company Number: US-UNITED THERAPEUTICS-UNT-2022-010894

PATIENT
  Age: 28 Year
  Sex: Female
  Weight: 79.365 kg

DRUGS (4)
  1. REMODULIN [Suspect]
     Active Substance: TREPROSTINIL
     Indication: Pulmonary arterial hypertension
     Dosage: UNK, CONTINUING
     Route: 041
     Dates: start: 20220322
  2. REMODULIN [Suspect]
     Active Substance: TREPROSTINIL
     Dosage: 0.020 ?G/KG, CONTINUING
     Route: 041
     Dates: start: 2022
  3. REMODULIN [Suspect]
     Active Substance: TREPROSTINIL
     Dosage: 0.0174 ?G/KG, CONTINUING
     Route: 041
     Dates: start: 2022
  4. SILDENAFIL [Concomitant]
     Active Substance: SILDENAFIL
     Indication: Product used for unknown indication
     Dosage: UNK
     Route: 065

REACTIONS (11)
  - Loss of consciousness [Recovered/Resolved]
  - Device related sepsis [Recovered/Resolved]
  - Catheter site discharge [Recovered/Resolved]
  - Purulent discharge [Recovered/Resolved]
  - Blood creatinine increased [Recovered/Resolved]
  - Dehydration [Recovered/Resolved]
  - Vascular device occlusion [Recovered/Resolved]
  - Staphylococcus test positive [Unknown]
  - Ketoacidosis [Recovered/Resolved]
  - Vascular device infection [Recovered/Resolved]
  - Urinary tract infection [Recovered/Resolved]

NARRATIVE: CASE EVENT DATE: 20220501
